FAERS Safety Report 5103986-5 (Version None)
Quarter: 2006Q3

REPORT INFORMATION
  Report Type: 
  Country: None (occurrence: None)
  Receive Date: 20060911
  Receipt Date: 20060829
  Transmission Date: 20061208
  Serious: Yes (Hospitalization, Other)
  Sender: FDA-Public Use
  Company Number: 2006100425

PATIENT
  Age: 36 Year
  Sex: Female
  Weight: 50 kg

DRUGS (8)
  1. TAHOR (ATORVASTATIN) [Suspect]
     Indication: TYPE IIA HYPERLIPIDAEMIA
     Dosage: 5 MG (5 MG, 1 IN 1 D), ORAL
     Route: 048
     Dates: start: 19990101, end: 20060810
  2. PROPRANOLOL [Suspect]
     Indication: SINUS TACHYCARDIA
     Dosage: 40 MG (40 MG, FREQUENCY: DAILY), ORAL
     Route: 048
     Dates: start: 20060614, end: 20060807
  3. AERIUS (DESLORATADINE) [Suspect]
     Indication: SINUS TACHYCARDIA
  4. NEBIVOLOL (NEBIVOLOL) [Suspect]
     Indication: SINUS TACHYCARDIA
     Dosage: 1 TABLET (FREQUENCY : DAILY), ORAL
     Route: 048
     Dates: start: 20060807, end: 20060807
  5. CHLORMADINONE ACETATE TAB [Concomitant]
  6. ESTRADIOL HEMIHYDRATE (ESTRADIOL) [Concomitant]
  7. OMEPRAZOLE [Concomitant]
  8. KETOPROFEN [Concomitant]

REACTIONS (11)
  - ANGIONEUROTIC OEDEMA [None]
  - BRONCHIAL IRRITATION [None]
  - DRUG INTERACTION [None]
  - ERYTHEMA [None]
  - HYPERSENSITIVITY [None]
  - MUSCLE SPASMS [None]
  - NONSPECIFIC REACTION [None]
  - OEDEMA PERIPHERAL [None]
  - PRURITUS [None]
  - SINUS TACHYCARDIA [None]
  - WHITE BLOOD CELL COUNT INCREASED [None]
